FAERS Safety Report 5812208-9 (Version None)
Quarter: 2008Q3

REPORT INFORMATION
  Report Type: 
  Country: None (occurrence: None)
  Receive Date: 20080714
  Receipt Date: 20080701
  Transmission Date: 20090109
  Serious: Yes (Hospitalization)
  Sender: FDA-Public Use
  Company Number: 001755

PATIENT
  Age: 60 Year
  Sex: Male

DRUGS (6)
  1. BUSULFEX [Suspect]
     Indication: STEM CELL TRANSPLANT
     Dosage: 31.48 ML, DAILY DOSE INTRAVENOUS
     Route: 042
     Dates: start: 20070613, end: 20070616
  2. CYCLOPHOSPHAMIDE [Concomitant]
  3. PHENYTOIN [Concomitant]
  4. FILGRASTIM (FILGRASTIM) [Concomitant]
  5. METHOTREXATE [Concomitant]
  6. TACROLIMUS [Concomitant]

REACTIONS (8)
  - ANOREXIA [None]
  - BONE MARROW TRANSPLANT REJECTION [None]
  - CATHETER RELATED INFECTION [None]
  - CYTOMEGALOVIRUS VIRAEMIA [None]
  - DIARRHOEA [None]
  - ENTEROCOLITIS BACTERIAL [None]
  - NAUSEA [None]
  - STOMATITIS [None]
